FAERS Safety Report 14627644 (Version 1)
Quarter: 2018Q1

REPORT INFORMATION
  Report Type: Spontaneous
  Country: US (occurrence: US)
  Receive Date: 20180312
  Receipt Date: 20180312
  Transmission Date: 20180509
  Serious: Yes (Hospitalization, Other)
  Sender: FDA-Public Use
  Company Number: US-BRISTOL-MYERS SQUIBB COMPANY-BMS-2018-022007

PATIENT
  Sex: Female
  Weight: 67.1 kg

DRUGS (1)
  1. ELIQUIS [Suspect]
     Active Substance: APIXABAN
     Indication: CEREBROVASCULAR ACCIDENT PROPHYLAXIS
     Dosage: 2.5 MG, UNK
     Route: 048
     Dates: start: 201603

REACTIONS (6)
  - Myocardial infarction [Unknown]
  - Abdominal discomfort [Unknown]
  - Haemorrhage [Unknown]
  - Metastases to liver [Unknown]
  - Dyspnoea [Unknown]
  - Haematochezia [Unknown]
